FAERS Safety Report 8117713-0 (Version None)
Quarter: 2012Q1

REPORT INFORMATION
  Report Type: 
  Country: None (occurrence: None)
  Receive Date: 20120203
  Receipt Date: 20120203
  Transmission Date: 20120608
  Serious: Yes (Hospitalization)
  Sender: FDA-Public Use
  Company Number: None

PATIENT
  Sex: Male
  Weight: 76.5 kg

DRUGS (4)
  1. TAXOTERE [Suspect]
     Dosage: 144 MG
  2. LEUPROLIDE ACETATE [Suspect]
     Dosage: 22.5 MG
  3. ZOMETA [Concomitant]
  4. DEXAMETHASONE [Concomitant]

REACTIONS (12)
  - ENDOCARDITIS [None]
  - CHILLS [None]
  - HYPOMAGNESAEMIA [None]
  - CARDIAC VALVE VEGETATION [None]
  - DEHYDRATION [None]
  - ANAEMIA [None]
  - MYOCARDIAL INFARCTION [None]
  - ASTHENIA [None]
  - HYPERGLYCAEMIA [None]
  - FEBRILE NEUTROPENIA [None]
  - WHITE BLOOD CELL COUNT DECREASED [None]
  - ACUTE PULMONARY OEDEMA [None]
